FAERS Safety Report 4621475-9 (Version None)
Quarter: 2005Q1

REPORT INFORMATION
  Report Type: 
  Country: None (occurrence: None)
  Receive Date: 20050329
  Receipt Date: 20050314
  Transmission Date: 20050727
  Serious: Yes (Disabling, Other)
  Sender: FDA-Public Use
  Company Number: GXKR2005US00780

PATIENT
  Age: 77 Year
  Sex: Male

DRUGS (3)
  1. FLUOXETINE [Suspect]
     Indication: DEPRESSION
     Dosage: 40 MG/DAY
  2. MODAFINIL [Concomitant]
  3. SILDENAFIL CITRATE [Concomitant]

REACTIONS (8)
  - BRUXISM [None]
  - DYSKINESIA [None]
  - DYSTONIA [None]
  - EMOTIONAL DISORDER [None]
  - FATIGUE [None]
  - PARKINSONISM [None]
  - STEREOTYPIC MOVEMENT DISORDER [None]
  - STRESS [None]
